FAERS Safety Report 6965221-2 (Version None)
Quarter: 2010Q3

REPORT INFORMATION
  Report Type: 
  Country: None (occurrence: None)
  Receive Date: 20100903
  Receipt Date: 20100823
  Transmission Date: 20110219
  Serious: Yes (Other)
  Sender: FDA-Public Use
  Company Number: PHFR2010GB01340

PATIENT
  Sex: Female

DRUGS (2)
  1. TEGRETOL [Suspect]
     Dosage: 15 ML MORNING + 20 ML EVENING
     Route: 048
  2. TEGRETOL [Suspect]
     Dosage: 15 ML MORNING + 20 ML EVENING
     Route: 048

REACTIONS (3)
  - CONVULSION [None]
  - NAUSEA [None]
  - VOMITING [None]
